FAERS Safety Report 10120564 (Version 3)
Quarter: 2014Q3

REPORT INFORMATION
  Report Type: Report from Study
  Country: US (occurrence: US)
  Receive Date: 20140425
  Receipt Date: 20140725
  Transmission Date: 20150326
  Serious: Yes (Hospitalization)
  Sender: FDA-Public Use
  Company Number: US-ACTELION-A-US2014-97651

PATIENT
  Age: 52 Year
  Sex: Female

DRUGS (1)
  1. TRACLEER [Suspect]
     Active Substance: BOSENTAN\BOSENTAN MONOHYDRATE
     Indication: COR PULMONALE CHRONIC
     Dosage: UNK
     Route: 048

REACTIONS (9)
  - Blood potassium abnormal [Unknown]
  - Dyspnoea [Unknown]
  - Blood test abnormal [Unknown]
  - Blood glucose decreased [Unknown]
  - Immune system disorder [Unknown]
  - Chest pain [Unknown]
  - Headache [Unknown]
  - Mental disorder [Unknown]
  - Blood sodium abnormal [Unknown]

NARRATIVE: CASE EVENT DATE: 20140402
